FAERS Safety Report 6044011-1 (Version None)
Quarter: 2009Q1

REPORT INFORMATION
  Report Type: 
  Country: None (occurrence: None)
  Receive Date: 20090114
  Receipt Date: 20090114
  Transmission Date: 20090719
  Serious: Yes (Death)
  Sender: FDA-Public Use
  Company Number: None

PATIENT
  Sex: Female
  Weight: 106.5953 kg

DRUGS (1)
  1. MULTIHANCE INJECTION 529MG/ML,15ML VIAL BRACCO DIAGNOSTICS BY NYCOMED [Suspect]
     Indication: HYPERPROLACTINAEMIA
     Dosage: 8ML SINGLE DOSE IV BOLUS
     Route: 040
     Dates: start: 20081230, end: 20081230

REACTIONS (5)
  - CONTRAST MEDIA REACTION [None]
  - COUGH [None]
  - DYSPNOEA [None]
  - SNEEZING [None]
  - UNRESPONSIVE TO STIMULI [None]
